FAERS Safety Report 17230709 (Version 9)
Quarter: 2021Q1

REPORT INFORMATION
  Report Type: Report from Study
  Country: US (occurrence: US)
  Receive Date: 20200103
  Receipt Date: 20210329
  Transmission Date: 20210419
  Serious: Yes (Hospitalization)
  Sender: FDA-Public Use
  Company Number: NVSC2019US085038

PATIENT
  Age: 9 Year
  Sex: Female
  Weight: 34.01 kg

DRUGS (6)
  1. ILARIS [Suspect]
     Active Substance: CANAKINUMAB
     Indication: STILL^S DISEASE
     Dosage: 150 MG, Q4W
     Route: 058
     Dates: start: 20190815
  2. ILARIS [Suspect]
     Active Substance: CANAKINUMAB
     Dosage: 0.9 ML, EVERY 4 WWEKS,ICD?10=M08.20.
     Route: 058
  3. ILARIS [Suspect]
     Active Substance: CANAKINUMAB
     Dosage: 150 MG, Q5W
     Route: 058
  4. ILARIS [Suspect]
     Active Substance: CANAKINUMAB
     Dosage: UNK
     Route: 065
     Dates: start: 20210216
  5. ILARIS [Suspect]
     Active Substance: CANAKINUMAB
     Dosage: UNK, QMO
     Route: 058
  6. ILARIS [Suspect]
     Active Substance: CANAKINUMAB
     Dosage: 150 MG, Q4W
     Route: 058
     Dates: start: 20191010

REACTIONS (6)
  - Pleurisy [Recovered/Resolved]
  - Incorrect product administration duration [Unknown]
  - Skin infection [Unknown]
  - Inappropriate schedule of product administration [Unknown]
  - Infection [Unknown]
  - Bacterial infection [Unknown]

NARRATIVE: CASE EVENT DATE: 20200711
